FAERS Safety Report 4953413-3 (Version None)
Quarter: 2006Q1

REPORT INFORMATION
  Report Type: 
  Country: None (occurrence: None)
  Receive Date: 20060324
  Receipt Date: 20060315
  Transmission Date: 20060701
  Serious: Yes (Other)
  Sender: FDA-Public Use
  Company Number: US-SANOFI-SYNTHELABO-A03200601434

PATIENT
  Sex: Female

DRUGS (2)
  1. AMBIEN [Suspect]
     Indication: DRUG USE FOR UNKNOWN INDICATION
     Route: 048
     Dates: start: 20060101
  2. AMBIEN [Suspect]
     Route: 048
     Dates: start: 20050101, end: 20060101

REACTIONS (4)
  - AMNESIA [None]
  - BINGE EATING [None]
  - ROAD TRAFFIC ACCIDENT [None]
  - SLEEP WALKING [None]
